FAERS Safety Report 6794434-8 (Version None)
Quarter: 2010Q2

REPORT INFORMATION
  Report Type: 
  Country: None (occurrence: None)
  Receive Date: 20100625
  Receipt Date: 20100615
  Transmission Date: 20101027
  Serious: No
  Sender: FDA-Public Use
  Company Number: 2009BI039440

PATIENT
  Sex: Female

DRUGS (3)
  1. TYSABRI [Suspect]
     Indication: MULTIPLE SCLEROSIS
     Route: 042
     Dates: start: 20071015
  2. TYSABRI [Suspect]
     Route: 042
     Dates: start: 20050111, end: 20050211
  3. AVONEX [Concomitant]
     Indication: MULTIPLE SCLEROSIS
     Route: 030

REACTIONS (4)
  - EXOSTOSIS [None]
  - FATIGUE [None]
  - INTERVERTEBRAL DISC DISORDER [None]
  - NECK PAIN [None]
